FAERS Safety Report 5102823-2 (Version None)
Quarter: 2006Q3

REPORT INFORMATION
  Report Type: 
  Country: None (occurrence: None)
  Receive Date: 20060907
  Receipt Date: 20060828
  Transmission Date: 20061208
  Serious: Yes (Life-Threatening, Hospitalization)
  Sender: FDA-Public Use
  Company Number: 229192

PATIENT
  Age: 48 Year
  Sex: Female

DRUGS (4)
  1. MABTHERA (RITUXIMAB) CONC FOR SOLUTION FOR INFUSION [Suspect]
     Indication: B-CELL LYMPHOMA
     Dosage: 375 MG/M2, UNK; INTRAVENOUS
     Route: 042
     Dates: start: 20060803, end: 20060828
  2. CYCLOPHOSPHAMIDE [Suspect]
     Indication: B-CELL LYMPHOMA
     Dosage: 750 MG/M2, UNK; INTRAVENOUS
     Route: 042
     Dates: start: 20060803, end: 20060828
  3. VINCRISTINE [Suspect]
     Indication: B-CELL LYMPHOMA
     Dosage: 2MG, UNK; INTRAVENOUS
     Route: 042
     Dates: start: 20060803, end: 20060828
  4. PREDNISOLONE [Suspect]
     Indication: B-CELL LYMPHOMA
     Dosage: 40 MG/M2, UNK; ORAL
     Route: 048
     Dates: start: 20060803, end: 20060828

REACTIONS (1)
  - ANAPHYLACTIC REACTION [None]
